FAERS Safety Report 6522153-1 (Version None)
Quarter: 2009Q4

REPORT INFORMATION
  Report Type: 
  Country: None (occurrence: None)
  Receive Date: 20091224
  Receipt Date: 20091214
  Transmission Date: 20100525
  Serious: Yes (Hospitalization)
  Sender: FDA-Public Use
  Company Number: 015027

PATIENT
  Age: 53 Year
  Sex: Male

DRUGS (14)
  1. PRIALT [Suspect]
     Indication: BACK PAIN
     Dosage: 0.013 UG, ONCE/HOUR, INTRATHECAL
     Route: 037
     Dates: end: 20091201
  2. PRIALT [Suspect]
     Indication: PAIN IN EXTREMITY
     Dosage: 0.013 UG, ONCE/HOUR, INTRATHECAL
     Route: 037
     Dates: end: 20091201
  3. SUFENTANIL CITRATE [Concomitant]
  4. DILAUDID (HYDROMOEPHON HYDROCHLORIDE) [Concomitant]
  5. METFORMIN HCL [Concomitant]
  6. TYLENOL /00020001/(PARACETAMOL) [Concomitant]
  7. IBUPROFEN [Concomitant]
  8. SENOKOT /00142201/ (SENNA ALEXANDRINA) [Concomitant]
  9. ZOFRAN /00955301/ (ONDANSETRON) [Concomitant]
  10. BUMEX [Concomitant]
  11. EPLERENONE (EPLERENONE) [Concomitant]
  12. VALIUM [Concomitant]
  13. CLONAZEPAM [Concomitant]
  14. POTASSIUM (POTASSIUM) [Concomitant]

REACTIONS (12)
  - ATELECTASIS [None]
  - BLOOD CULTURE POSITIVE [None]
  - CONFUSIONAL STATE [None]
  - DRUG INTERACTION [None]
  - HALLUCINATION, AUDITORY [None]
  - HEADACHE [None]
  - HYPOPHAGIA [None]
  - MENTAL STATUS CHANGES [None]
  - PHOTOPHOBIA [None]
  - PNEUMONIA [None]
  - SPEECH DISORDER [None]
  - STAPHYLOCOCCAL INFECTION [None]
